FAERS Safety Report 22637572 (Version 1)
Quarter: 2023Q2

REPORT INFORMATION
  Report Type: Spontaneous
  Country: PT (occurrence: PT)
  Receive Date: 20230626
  Receipt Date: 20230626
  Transmission Date: 20230721
  Serious: Yes (Other)
  Sender: FDA-Public Use
  Company Number: None

PATIENT
  Age: 59 Year
  Sex: Female
  Weight: 74 kg

DRUGS (6)
  1. CIPROFLOXACIN [Suspect]
     Active Substance: CIPROFLOXACIN
     Indication: Gastrointestinal infection
     Dosage: 1000 MILLIGRAM DAILY; 500MG EVERY 12 HOURS FOR 8 DAYS
     Route: 065
     Dates: start: 20230514, end: 20230521
  2. FLAGYL [Suspect]
     Active Substance: METRONIDAZOLE\METRONIDAZOLE HYDROCHLORIDE
     Indication: Gastrointestinal infection
     Dosage: 500 MILLIGRAM DAILY; 250MG EVERY 12 HOURS FOR 8 DAYS
     Route: 065
     Dates: start: 20230514, end: 20230521
  3. OXIS [Concomitant]
     Active Substance: FORMOTEROL FUMARATE
     Indication: Product used for unknown indication
     Dosage: OXIS TURBOHALER 9 MICROGRAMS
     Route: 065
  4. PULMICORT TURBUHALER [Concomitant]
     Active Substance: BUDESONIDE
     Indication: Product used for unknown indication
     Dosage: PULMICORT TURBOHALER 400 MICROGRAMS
     Route: 065
  5. SIMVASTATIN [Concomitant]
     Active Substance: SIMVASTATIN
     Indication: Product used for unknown indication
     Dosage: SIMVASTATIN 20 MG
     Route: 065
  6. LISINOPRIL [Concomitant]
     Active Substance: LISINOPRIL
     Indication: Product used for unknown indication
     Dosage: LISINOPRIL 5 MG
     Route: 065

REACTIONS (5)
  - Lip swelling [Recovering/Resolving]
  - Lip ulceration [Recovering/Resolving]
  - Rash macular [Recovering/Resolving]
  - Eyelid oedema [Recovering/Resolving]
  - Rash pruritic [Recovering/Resolving]

NARRATIVE: CASE EVENT DATE: 20230514
